FAERS Safety Report 20778320 (Version 1)
Quarter: 2022Q2

REPORT INFORMATION
  Report Type: Spontaneous
  Country: US (occurrence: None)
  Receive Date: 20220503
  Receipt Date: 20220503
  Transmission Date: 20220721
  Serious: Yes (Hospitalization)
  Sender: FDA-Public Use
  Company Number: None

PATIENT
  Sex: Female
  Weight: 85.7 kg

DRUGS (1)
  1. TAXOL [Suspect]
     Active Substance: PACLITAXEL
     Dates: end: 20210809

REACTIONS (4)
  - Erosive oesophagitis [None]
  - Hiatus hernia [None]
  - Acquired oesophageal web [None]
  - Haematochezia [None]

NARRATIVE: CASE EVENT DATE: 20210813
